FAERS Safety Report 9542215 (Version 1)
Quarter: 2013Q3

REPORT INFORMATION
  Report Type: Spontaneous
  Country: TN (occurrence: None)
  Receive Date: 20130918
  Receipt Date: 20130918
  Transmission Date: 20140515
  Serious: Yes (Other)
  Sender: FDA-Public Use
  Company Number: FK201304237

PATIENT
  Age: 17 Year
  Sex: Male

DRUGS (2)
  1. METHOTREXATE (METHOTREXATE) [Suspect]
     Indication: ACUTE LYMPHOCYTIC LEUKAEMIA
  2. CIPROFLOXACIN (CIPROFLOXACIN) [Suspect]
     Indication: PNEUMONIA

REACTIONS (3)
  - Drug interaction [None]
  - Blood creatinine increased [None]
  - Vomiting [None]
